FAERS Safety Report 4838477-X (Version None)
Quarter: 2005Q4

REPORT INFORMATION
  Report Type: 
  Country: None (occurrence: None)
  Receive Date: 20051123
  Receipt Date: 20051025
  Transmission Date: 20060501
  Serious: No
  Sender: FDA-Public Use
  Company Number: 2005S1010472

PATIENT
  Age: 53 Year
  Sex: Female
  Weight: 99.7913 kg

DRUGS (3)
  1. DURAGESIC (JANSSEN)  (75 MCG/HR) [Suspect]
     Indication: RHEUMATOID ARTHRITIS
     Dosage: 150 MCG/HR; Q3D; TRANS
     Route: 062
     Dates: start: 20030101, end: 20050401
  2. FENTANYL [Suspect]
     Indication: RHEUMATOID ARTHRITIS
     Dosage: 150 MCG/HR; Q3D; TRANS
     Route: 062
     Dates: start: 20050401
  3. PARACETAMOL/OXYCODONE HYDROCHLORIDE [Concomitant]

REACTIONS (3)
  - CONDITION AGGRAVATED [None]
  - INADEQUATE ANALGESIA [None]
  - PAIN [None]
